FAERS Safety Report 7215662-3 (Version None)
Quarter: 2011Q1

REPORT INFORMATION
  Report Type: 
  Country: None (occurrence: None)
  Receive Date: 20110104
  Receipt Date: 20110104
  Transmission Date: 20110831
  Serious: Yes (Other)
  Sender: FDA-Public Use
  Company Number: None

PATIENT
  Age: 71 Year
  Sex: Male
  Weight: 90.7194 kg

DRUGS (2)
  1. CODEINE PHOSPHATE AND ACETAMINOPHEN [Suspect]
     Indication: PAIN
     Dosage: 1 EVERY 6 HRS AS NEE  PO   1 DOSE
     Route: 048
     Dates: start: 20101228, end: 20101228
  2. NAPROXEN [Suspect]
     Indication: INFLAMMATION
     Dosage: 1 TWICE/DAY PO   1 DOSE
     Route: 048
     Dates: start: 20101228, end: 20101228

REACTIONS (5)
  - PALLOR [None]
  - HYPERHIDROSIS [None]
  - PARAESTHESIA [None]
  - ABDOMINAL PAIN [None]
  - DYSSTASIA [None]
